FAERS Safety Report 6724230-9 (Version None)
Quarter: 2010Q2

REPORT INFORMATION
  Report Type: 
  Country: None (occurrence: None)
  Receive Date: 20100513
  Receipt Date: 20100507
  Transmission Date: 20101027
  Serious: Yes (Hospitalization)
  Sender: FDA-Public Use
  Company Number: FR-MERCK-1004FRA00123

PATIENT
  Age: 60 Year
  Sex: Female

DRUGS (4)
  1. EMEND [Suspect]
     Indication: PROPHYLAXIS OF NAUSEA AND VOMITING
     Route: 048
     Dates: start: 20100309
  2. DOXORUBICIN [Concomitant]
     Indication: SARCOMA UTERUS
     Route: 041
     Dates: start: 20100309, end: 20100309
  3. GRANISETRON HYDROCHLORIDE [Concomitant]
     Indication: NAUSEA
     Route: 042
     Dates: start: 20100309, end: 20100309
  4. IFOSFAMIDE [Suspect]
     Indication: SARCOMA UTERUS
     Route: 042
     Dates: start: 20100309, end: 20100310

REACTIONS (1)
  - ENCEPHALOPATHY [None]
